FAERS Safety Report 10560765 (Version 1)
Quarter: 2014Q4

REPORT INFORMATION
  Report Type: Spontaneous
  Country: PL (occurrence: PL)
  Receive Date: 20141103
  Receipt Date: 20141103
  Transmission Date: 20150529
  Serious: Yes (Other)
  Sender: FDA-Public Use
  Company Number: PL-GLAXOSMITHKLINE-PL2014013398

PATIENT
  Age: 41 Year
  Sex: Male
  Weight: 90 kg

DRUGS (1)
  1. CEFUROXIM [Suspect]
     Active Substance: CEFUROXIME
     Indication: PRODUCT USED FOR UNKNOWN INDICATION
     Route: 042
     Dates: start: 20140411, end: 20140411

REACTIONS (4)
  - Feeling hot [Unknown]
  - Malaise [Unknown]
  - Paraesthesia [Unknown]
  - Syncope [Unknown]

NARRATIVE: CASE EVENT DATE: 20140411
